FAERS Safety Report 8005055-3 (Version None)
Quarter: 2011Q4

REPORT INFORMATION
  Report Type: 
  Country: None (occurrence: None)
  Receive Date: 20111223
  Receipt Date: 20111220
  Transmission Date: 20120403
  Serious: Yes (Death)
  Sender: FDA-Public Use
  Company Number: UA-B.I. PHARMACEUTICALS,INC./RIDGEFIELD-2011-AP-00736AP

PATIENT
  Age: 84 Year
  Sex: Female

DRUGS (2)
  1. PRADAXA [Suspect]
     Dosage: 2 CAPSULES ONCE A DAY
     Route: 048
     Dates: start: 20111217, end: 20111218
  2. PRADAXA [Suspect]
     Indication: HIP ARTHROPLASTY
     Dosage: 1 CAPSULE ONCE A DAY
     Route: 048
     Dates: start: 20111216, end: 20111216

REACTIONS (1)
  - DEATH [None]
